FAERS Safety Report 15882922 (Version 1)
Quarter: 2019Q1

REPORT INFORMATION
  Report Type: Spontaneous
  Country: US (occurrence: US)
  Receive Date: 20190129
  Receipt Date: 20190129
  Transmission Date: 20190417
  Serious: No
  Sender: FDA-Public Use
  Company Number: US-TEVA-2019-US-1004970

PATIENT
  Sex: Male

DRUGS (1)
  1. CLONAZEPAM ACTAVIS [Suspect]
     Active Substance: CLONAZEPAM
     Indication: ANXIETY
     Route: 065

REACTIONS (9)
  - Pain [Unknown]
  - Agitation [Unknown]
  - Insomnia [Unknown]
  - Drug effect decreased [Unknown]
  - Drug ineffective [Unknown]
  - Disorientation [Unknown]
  - Abdominal discomfort [Unknown]
  - Product substitution issue [Unknown]
  - Abdominal pain upper [Unknown]
